FAERS Safety Report 8622088-4 (Version None)
Quarter: 2012Q3

REPORT INFORMATION
  Report Type: 
  Country: None (occurrence: None)
  Receive Date: 20120825
  Receipt Date: 20120816
  Transmission Date: 20120928
  Serious: Yes (Hospitalization, Disabling, Other)
  Sender: FDA-Public Use
  Company Number: US-009507513-1107USA02568

PATIENT

DRUGS (5)
  1. FOSAMAX [Suspect]
     Dosage: 70 MG, QW
     Route: 048
     Dates: start: 20091006, end: 20100405
  2. BONIVA [Suspect]
     Indication: OSTEOPOROSIS
     Dosage: 150 MG, QM
     Dates: start: 20071102, end: 20090629
  3. FOSAMAX [Suspect]
     Indication: OSTEOPENIA
     Dosage: 70 MG, QW
     Route: 048
     Dates: start: 20010508, end: 20050401
  4. BONIVA [Suspect]
     Indication: OSTEOPENIA
  5. FOSAMAX [Suspect]
     Indication: OSTEOPOROSIS
     Dosage: 10 MG, QD
     Route: 048
     Dates: start: 19951213, end: 20001201

REACTIONS (118)
  - JOINT INJURY [None]
  - SPINAL CORD COMPRESSION [None]
  - MUSCLE INJURY [None]
  - MUSCLE RUPTURE [None]
  - BLOOD CHOLESTEROL INCREASED [None]
  - HYPOAESTHESIA ORAL [None]
  - SJOGREN'S SYNDROME [None]
  - AMNESIA [None]
  - BREAST DISORDER FEMALE [None]
  - CHEST PAIN [None]
  - LIGAMENT SPRAIN [None]
  - SPINAL OSTEOARTHRITIS [None]
  - BLADDER IRRITATION [None]
  - ABSCESS JAW [None]
  - ABDOMINAL PAIN [None]
  - FEMUR FRACTURE [None]
  - ABSCESS [None]
  - ORAL INFECTION [None]
  - FALL [None]
  - PERIPROSTHETIC FRACTURE [None]
  - URINARY TRACT INFECTION [None]
  - COMPRESSION FRACTURE [None]
  - DEPRESSION [None]
  - BLADDER DISORDER [None]
  - SCOLIOSIS [None]
  - PERIODONTAL DISEASE [None]
  - ANTINUCLEAR ANTIBODY POSITIVE [None]
  - CEREBRAL ARTERIOSCLEROSIS [None]
  - ORAL TORUS [None]
  - SECONDARY SEQUESTRUM [None]
  - ACTINOMYCOSIS [None]
  - OESOPHAGITIS ULCERATIVE [None]
  - ARTHRALGIA [None]
  - DYSPHAGIA [None]
  - GINGIVITIS [None]
  - OEDEMA [None]
  - HAEMATOMA [None]
  - INCONTINENCE [None]
  - POLYNEUROPATHY [None]
  - OROANTRAL FISTULA [None]
  - OSTEITIS CONDENSANS [None]
  - OPEN WOUND [None]
  - MAJOR DEPRESSION [None]
  - CAROTID ARTERY STENOSIS [None]
  - TOOTH LOSS [None]
  - MENTAL DISORDER [None]
  - CELLULITIS [None]
  - DEVICE DISLOCATION [None]
  - LUMBAR RADICULOPATHY [None]
  - SEROMA [None]
  - OSTEONECROSIS OF JAW [None]
  - INTERVERTEBRAL DISC PROTRUSION [None]
  - ORAL DISORDER [None]
  - DRY MOUTH [None]
  - ECZEMA [None]
  - FOOT FRACTURE [None]
  - BARRETT'S OESOPHAGUS [None]
  - HIATUS HERNIA [None]
  - CYST [None]
  - OSTEOARTHRITIS [None]
  - BONE DISORDER [None]
  - DEMENTIA [None]
  - BACK PAIN [None]
  - BUNION [None]
  - SLEEP APNOEA SYNDROME [None]
  - CHRONIC INFLAMMATORY DEMYELINATING POLYRADICULONEUROPATHY [None]
  - CONTUSION [None]
  - PATELLA FRACTURE [None]
  - ENDOMETRIAL DISORDER [None]
  - MYELOPATHY [None]
  - KNEE ARTHROPLASTY [None]
  - ANAEMIA [None]
  - OSTEOMYELITIS [None]
  - FISTULA [None]
  - LICHENOID KERATOSIS [None]
  - HYPERLIPIDAEMIA [None]
  - DEVICE FAILURE [None]
  - LACERATION [None]
  - SPONDYLOLISTHESIS [None]
  - DEAFNESS NEUROSENSORY [None]
  - HAEMATOMA INFECTION [None]
  - MUSCULOSKELETAL CHEST PAIN [None]
  - HYPERTENSION [None]
  - WRIST FRACTURE [None]
  - DENTAL CARIES [None]
  - IMPAIRED HEALING [None]
  - CATARACT [None]
  - SYNOVITIS [None]
  - HEPATIC STEATOSIS [None]
  - GAIT DISTURBANCE [None]
  - AZOTAEMIA [None]
  - OROPHARYNGEAL PAIN [None]
  - DENTAL IMPLANTATION [None]
  - MALAISE [None]
  - OTITIS EXTERNA [None]
  - ROAD TRAFFIC ACCIDENT [None]
  - SUICIDAL IDEATION [None]
  - POSTMENOPAUSAL HAEMORRHAGE [None]
  - MENTAL DISORDER DUE TO A GENERAL MEDICAL CONDITION [None]
  - DIARRHOEA [None]
  - GASTROOESOPHAGEAL REFLUX DISEASE [None]
  - BONE DENSITY DECREASED [None]
  - NECROSIS [None]
  - EXPOSED BONE IN JAW [None]
  - LUMBAR SPINAL STENOSIS [None]
  - RIB FRACTURE [None]
  - ANXIETY [None]
  - EXOSTOSIS [None]
  - PAIN [None]
  - SWELLING [None]
  - STOMATITIS [None]
  - ANGIOMYOLIPOMA [None]
  - PARANASAL CYST [None]
  - ROTATOR CUFF SYNDROME [None]
  - IMPLANT SITE ABSCESS [None]
  - NERVE INJURY [None]
  - EPISTAXIS [None]
  - VENOUS INSUFFICIENCY [None]
